FAERS Safety Report 8842976 (Version 1)
Quarter: 2012Q4

REPORT INFORMATION
  Report Type: 
  Country: US (occurrence: US)
  Receive Date: 20121016
  Receipt Date: 20121016
  Transmission Date: 20130627
  Serious: Yes (Other)
  Sender: FDA-Public Use
  Company Number: US-VERTEX PHARMACEUTICAL INC.-2012-022926

PATIENT
  Sex: Male
  Weight: 102 kg

DRUGS (9)
  1. VX-950 [Suspect]
     Indication: HEPATITIS C
     Dosage: 2 DF, tid
     Route: 048
     Dates: start: 2012
  2. PEGASYS [Suspect]
     Indication: HEPATITIS C
     Dosage: 180 ?g, UNK
     Route: 058
     Dates: start: 2012
  3. RIBASPHERE [Suspect]
     Indication: HEPATITIS C
     Dosage: 3 DF, qd
     Route: 048
     Dates: start: 2012
  4. NADOLOL [Concomitant]
     Dosage: UNK, qd
  5. CITALOPRAM [Concomitant]
  6. BENICAR HCT [Concomitant]
     Dosage: UNK, qd
  7. EQL [Concomitant]
     Dosage: UNK, qd
  8. OMEPRAZOLE [Concomitant]
     Dosage: UNK UNK, qd
  9. NEUPOGEN [Concomitant]

REACTIONS (2)
  - Anaemia [Unknown]
  - Fatigue [Unknown]
